FAERS Safety Report 24222702 (Version 1)
Quarter: 2024Q3

REPORT INFORMATION
  Report Type: Spontaneous
  Country: US (occurrence: None)
  Receive Date: 20240816
  Receipt Date: 20240816
  Transmission Date: 20241016
  Serious: Yes (Hospitalization)
  Sender: Public
  Company Number: None

PATIENT
  Age: 60 Year
  Sex: Male

DRUGS (24)
  1. OPSUMIT [Suspect]
     Active Substance: MACITENTAN
     Indication: Pulmonary arterial hypertension
     Dosage: FREQUENCY : DAILY;?
     Route: 048
     Dates: start: 20151113
  2. TADALAFIL [Concomitant]
     Active Substance: TADALAFIL
  3. SELEXIPAG [Concomitant]
     Active Substance: SELEXIPAG
  4. TORSEMIDE [Concomitant]
  5. COLCHICINE [Concomitant]
     Active Substance: COLCHICINE
  6. DIGOXIN [Concomitant]
     Active Substance: DIGOXIN
  7. SPIRONOLACTONE [Concomitant]
  8. POTASSIUM CHLORIDE [Concomitant]
  9. OXYCODONE-ACETAMINOPHEN [Concomitant]
  10. DULOXETINE [Concomitant]
  11. RANOLAZINE [Concomitant]
  12. FLOMAX [Concomitant]
     Active Substance: TAMSULOSIN HYDROCHLORIDE
  13. CHLOROTHIAZIDE [Concomitant]
  14. WINREVAIR [Concomitant]
  15. ALBUTEROL SULFATE [Concomitant]
     Active Substance: ALBUTEROL SULFATE
  16. ALLOPURINOL [Concomitant]
  17. PANTOPRAZOLE [Concomitant]
     Active Substance: PANTOPRAZOLE
  18. BREYNA HFA [Concomitant]
  19. BUPROPION [Concomitant]
     Active Substance: BUPROPION
  20. COLACE [Concomitant]
     Active Substance: DOCUSATE SODIUM
  21. ROSUVASTATIN [Concomitant]
     Active Substance: ROSUVASTATIN\ROSUVASTATIN CALCIUM
  22. ASPIRIN [Concomitant]
     Active Substance: ASPIRIN
  23. ALBUTEROL NEB SOLN [Concomitant]
  24. VITAMINS [Concomitant]
     Active Substance: VITAMINS

REACTIONS (2)
  - Atrioventricular block complete [None]
  - Respiratory failure [None]

NARRATIVE: CASE EVENT DATE: 20240805
